FAERS Safety Report 16203045 (Version 4)
Quarter: 2019Q2

REPORT INFORMATION
  Report Type: Spontaneous
  Country: ES (occurrence: ES)
  Receive Date: 20190416
  Receipt Date: 20190516
  Transmission Date: 20190711
  Serious: Yes (Death, Other)
  Sender: FDA-Public Use
  Company Number: ES-009507513-1904ESP005458

PATIENT
  Age: 49 Year
  Sex: Male
  Weight: 75 kg

DRUGS (7)
  1. VANCOMYCIN [Suspect]
     Active Substance: VANCOMYCIN
     Indication: CLOSTRIDIUM DIFFICILE INFECTION
     Dosage: UNK
  2. HALOPERIDOL. [Concomitant]
     Active Substance: HALOPERIDOL
     Indication: AGITATION
     Dosage: 7.5 MILLIGRAM, QD (2.5MG/8H)
     Route: 042
     Dates: end: 20190206
  3. MORPHINE HYDROCHLORIDE [Concomitant]
     Active Substance: MORPHINE HYDROCHLORIDE
     Indication: SEDATION
     Dosage: PERFUSION
     Route: 042
     Dates: start: 20190206, end: 20190206
  4. METOCLOPRAMIDE. [Concomitant]
     Active Substance: METOCLOPRAMIDE
     Indication: NAUSEA
     Dosage: 30 MILLIGRAM, QD (10MG/8H)
     Route: 042
     Dates: start: 20190123, end: 20190206
  5. ZINPLAVA [Suspect]
     Active Substance: BEZLOTOXUMAB
     Indication: CLOSTRIDIUM DIFFICILE IMMUNISATION
     Dosage: SINGLE DOSE
     Route: 042
     Dates: start: 20190110, end: 20190110
  6. ACETAMINOPHEN. [Concomitant]
     Active Substance: ACETAMINOPHEN
     Indication: PYREXIA
     Dosage: 3 GRAM, QD (1G/8H)
     Route: 042
     Dates: start: 20181204, end: 20190206
  7. DIPYRONE [Concomitant]
     Active Substance: DIPYRONE
     Indication: PYREXIA
     Dosage: 6 GRAM, QD (PERFUSION)
     Route: 042
     Dates: start: 20181223, end: 20190206

REACTIONS (5)
  - Haemoptysis [Not Recovered/Not Resolved]
  - Death [Fatal]
  - Hypoxia [Not Recovered/Not Resolved]
  - Stenotrophomonas infection [Unknown]
  - Lung infection pseudomonal [Unknown]

NARRATIVE: CASE EVENT DATE: 20190206
